FAERS Safety Report 4771277-8 (Version None)
Quarter: 2005Q3

REPORT INFORMATION
  Report Type: 
  Country: None (occurrence: None)
  Receive Date: 20050915
  Receipt Date: 20050907
  Transmission Date: 20060218
  Serious: No
  Sender: FDA-Public Use
  Company Number: TAP2005Q01321

PATIENT
  Age: 77 Year
  Sex: Female
  Weight: 83.9154 kg

DRUGS (3)
  1. PREVACID [Suspect]
     Indication: GASTROOESOPHAGEAL REFLUX DISEASE
     Dosage: 30 MG, AS REQUIRED, PER ORAL
     Route: 048
     Dates: start: 20050601, end: 20050730
  2. SYNTHROID [Concomitant]
  3. ASPIRIN [Concomitant]

REACTIONS (6)
  - ABDOMINAL DISTENSION [None]
  - DECREASED APPETITE [None]
  - DIARRHOEA [None]
  - FATIGUE [None]
  - NAUSEA [None]
  - OVARIAN CANCER [None]
